FAERS Safety Report 21252529 (Version 2)
Quarter: 2022Q3

REPORT INFORMATION
  Report Type: Report from Study
  Country: CA (occurrence: CA)
  Receive Date: 20220825
  Receipt Date: 20220826
  Transmission Date: 20221026
  Serious: Yes (Hospitalization)
  Sender: FDA-Public Use
  Company Number: CA-JNJFOC-20220603403

PATIENT
  Age: 67 Year
  Sex: Male
  Weight: 68.100 kg

DRUGS (3)
  1. STELARA [Suspect]
     Active Substance: USTEKINUMAB
     Indication: Crohn^s disease
     Dosage: ON 21-JUL-2022, THE PATIENT RECEIVED 48TH INJECTION OF USTEKINUMAB OF DOSE 90 MG AND COMPLETED PARTI
     Route: 058
     Dates: start: 20180223
  2. STELARA [Suspect]
     Active Substance: USTEKINUMAB
  3. PFIZER-BIONTECH COVID-19 VACCINE [Concomitant]
     Active Substance: TOZINAMERAN
     Indication: COVID-19 prophylaxis
     Dosage: THREE PFIZER SHOTS
     Route: 065

REACTIONS (8)
  - Postoperative wound infection [Unknown]
  - Postoperative abscess [Recovering/Resolving]
  - Intestinal obstruction [Recovered/Resolved]
  - General physical health deterioration [Unknown]
  - Abdominal pain [Unknown]
  - Asthenia [Unknown]
  - Fatigue [Unknown]
  - Off label use [Unknown]

NARRATIVE: CASE EVENT DATE: 20220101
